FAERS Safety Report 4764703-1 (Version None)
Quarter: 2005Q3

REPORT INFORMATION
  Report Type: 
  Country: None (occurrence: None)
  Receive Date: 20050909
  Receipt Date: 20050311
  Transmission Date: 20060218
  Serious: Yes (Hospitalization)
  Sender: FDA-Public Use
  Company Number: US-MERCK-0503USA02577

PATIENT
  Age: 52 Year
  Sex: Male
  Weight: 122 kg

DRUGS (9)
  1. VIOXX [Suspect]
     Indication: ARTHRITIS
     Route: 048
     Dates: start: 20020101, end: 20030101
  2. VIOXX [Suspect]
     Route: 048
     Dates: start: 20030819, end: 20040101
  3. VIOXX [Suspect]
     Route: 048
     Dates: start: 20020101, end: 20040101
  4. VIOXX [Suspect]
     Indication: PAIN
     Route: 048
     Dates: start: 20020101, end: 20030101
  5. VIOXX [Suspect]
     Route: 048
     Dates: start: 20030819, end: 20040101
  6. VIOXX [Suspect]
     Route: 048
     Dates: start: 20020101, end: 20040101
  7. HYDROCHLOROTHIAZIDE [Concomitant]
     Route: 065
  8. LIPITOR [Concomitant]
     Route: 065
     Dates: start: 20021205
  9. ALLEGRA [Concomitant]
     Route: 065

REACTIONS (26)
  - APHASIA [None]
  - ASTHENIA [None]
  - BACK PAIN [None]
  - BLOOD CHOLESTEROL INCREASED [None]
  - BLOOD TRIGLYCERIDES INCREASED [None]
  - BONE PAIN [None]
  - CAROTID ARTERY DISEASE [None]
  - CAROTID ARTERY OCCLUSION [None]
  - CAROTID ARTERY STENOSIS [None]
  - CEREBRAL ISCHAEMIA [None]
  - CEREBROVASCULAR ACCIDENT [None]
  - CONFUSIONAL STATE [None]
  - CORONARY ARTERY DISEASE [None]
  - DYSARTHRIA [None]
  - DYSKINESIA [None]
  - HYPERCHOLESTEROLAEMIA [None]
  - HYPERSENSITIVITY [None]
  - HYPERTENSION [None]
  - HYPOAESTHESIA [None]
  - PAIN [None]
  - PARAESTHESIA [None]
  - SINUS DISORDER [None]
  - TRANSIENT ISCHAEMIC ATTACK [None]
  - TREMOR [None]
  - VISION BLURRED [None]
  - VISUAL FIELD DEFECT [None]
